FAERS Safety Report 10775601 (Version 1)
Quarter: 2015Q1

REPORT INFORMATION
  Report Type: Report from Study
  Country: DO (occurrence: DO)
  Receive Date: 20150209
  Receipt Date: 20150209
  Transmission Date: 20150721
  Serious: Yes (Hospitalization)
  Sender: FDA-Public Use
  Company Number: DO-ABBVIE-14K-279-1309035-00

PATIENT
  Age: 46 Year
  Sex: Female
  Weight: 38.14 kg

DRUGS (1)
  1. HUMIRA [Suspect]
     Active Substance: ADALIMUMAB
     Indication: COLITIS ULCERATIVE
     Route: 058
     Dates: start: 20140815

REACTIONS (14)
  - Gastrointestinal pain [Not Recovered/Not Resolved]
  - Gastrointestinal inflammation [Not Recovered/Not Resolved]
  - Constipation [Unknown]
  - Anxiety [Unknown]
  - Malnutrition [Recovering/Resolving]
  - Ovarian cyst [Unknown]
  - Drug ineffective [Not Recovered/Not Resolved]
  - Lymphadenopathy [Unknown]
  - Weight decreased [Not Recovered/Not Resolved]
  - Gait disturbance [Unknown]
  - Dehydration [Unknown]
  - Thyroid disorder [Unknown]
  - Initial insomnia [Not Recovered/Not Resolved]
  - Rectal tenesmus [Not Recovered/Not Resolved]
